FAERS Safety Report 10866869 (Version 1)
Quarter: 2015Q1

REPORT INFORMATION
  Report Type: Report from Study
  Country: CA (occurrence: CA)
  Receive Date: 20150225
  Receipt Date: 20150225
  Transmission Date: 20150721
  Serious: Yes (Other)
  Sender: FDA-Public Use
  Company Number: CA-ROCHE-1542410

PATIENT
  Sex: Female

DRUGS (3)
  1. RITUXAN [Suspect]
     Active Substance: RITUXIMAB
     Indication: DERMATOMYOSITIS
     Dosage: FREQUENCY:  DAY 1 AND DAY 15, LAST RITUXAN RECEIVEDC: 26/JAN/2014
     Route: 042
     Dates: start: 20140113
  2. IVIG [Concomitant]
     Active Substance: HUMAN IMMUNOGLOBULIN G
     Route: 065
  3. PREDNISONE. [Concomitant]
     Active Substance: PREDNISONE

REACTIONS (3)
  - Osteonecrosis [Not Recovered/Not Resolved]
  - Dermatomyositis [Unknown]
  - Blood test abnormal [Unknown]
